FAERS Safety Report 17196428 (Version 3)
Quarter: 2020Q2

REPORT INFORMATION
  Report Type: Spontaneous
  Country: FR (occurrence: FR)
  Receive Date: 20191224
  Receipt Date: 20200615
  Transmission Date: 20200713
  Serious: Yes (Hospitalization, Congenital Anomaly, Other)
  Sender: FDA-Public Use
  Company Number: FR-UCBSA-2019054230

PATIENT
  Sex: Male
  Weight: 2.75 kg

DRUGS (21)
  1. KEPPRA [Suspect]
     Active Substance: LEVETIRACETAM
     Dosage: 1 IN THE MORNING AND 2 IN THE EVENING THEN 1 IN THE MORNING AND IN THE EVENING
     Route: 064
     Dates: start: 20110202, end: 20110301
  2. ASPEGIC [ACETYLSALICYLIC ACID] [Suspect]
     Active Substance: ASPIRIN
     Indication: PRODUCT USED FOR UNKNOWN INDICATION
     Dosage: 1 AT LUNCH
     Route: 064
     Dates: start: 20110202, end: 20110301
  3. URBANYL [Suspect]
     Active Substance: CLOBAZAM
     Dosage: 1 IN THE MORNING AND ? IN THE EVENING
     Route: 064
     Dates: start: 20110202, end: 20110301
  4. DEPAKINE CHRONO [Suspect]
     Active Substance: VALPROATE SODIUM
     Dosage: PROGRESSIVE DIMINUTION
     Route: 064
     Dates: start: 20110202, end: 20110301
  5. KEPPRA [Suspect]
     Active Substance: LEVETIRACETAM
     Dosage: 3 IN THE MORNING AND IN THE EVENING
     Route: 064
     Dates: start: 20110301, end: 20110526
  6. ASPEGIC [ACETYLSALICYLIC ACID] [Suspect]
     Active Substance: ASPIRIN
     Dosage: 1 PER DAY
     Route: 064
     Dates: start: 20110526, end: 20110802
  7. DEPAKINE CHRONO [Suspect]
     Active Substance: VALPROATE SODIUM
     Dosage: 1 ,5 TABLETS IN THE MORNING AND 2 IN THE EVENING DURING 5 DAYS ; 1,5 TABLETS IN THE MORNING AND 1,5
     Route: 064
     Dates: start: 20110105, end: 20110202
  8. URBANYL [Suspect]
     Active Substance: CLOBAZAM
     Indication: PRODUCT USED FOR UNKNOWN INDICATION
     Dosage: 1 IN THE MORNING
     Route: 064
     Dates: start: 20110105, end: 20110202
  9. CELESTENE [BETAMETHASONE SODIUM PHOSPHATE] [Concomitant]
     Active Substance: BETAMETHASONE SODIUM PHOSPHATE
     Indication: PRODUCT USED FOR UNKNOWN INDICATION
  10. KEPPRA [Suspect]
     Active Substance: LEVETIRACETAM
     Indication: PRODUCT USED FOR UNKNOWN INDICATION
     Dosage: 3 IN THE MORNING AND IN THE EVENING
     Route: 064
     Dates: start: 20110526, end: 20110802
  11. KEPPRA [Suspect]
     Active Substance: LEVETIRACETAM
     Dosage: 2 (UNSPECIFIED UNITS), 2X/DAY (BID)
     Route: 064
     Dates: start: 20110105, end: 20110202
  12. ASPEGIC [ACETYLSALICYLIC ACID] [Suspect]
     Active Substance: ASPIRIN
     Dosage: 1 PER DAY
     Route: 064
     Dates: start: 20110301, end: 20110526
  13. FOLIC ACID. [Concomitant]
     Active Substance: FOLIC ACID
     Indication: PRODUCT USED FOR UNKNOWN INDICATION
  14. URBANYL [Suspect]
     Active Substance: CLOBAZAM
     Dosage: 1 IN THE EVENING
     Route: 064
     Dates: start: 20110301, end: 20110526
  15. SPECIAFOLDINE [Concomitant]
     Active Substance: FOLIC ACID
     Indication: PRODUCT USED FOR UNKNOWN INDICATION
     Dosage: 2 IN THE MORNING AND IN THE EVENING
     Route: 064
     Dates: start: 20110105, end: 20110202
  16. SPECIAFOLDINE [Concomitant]
     Active Substance: FOLIC ACID
     Dosage: 1 IN THE MORNING AND IN THE EVENING
     Route: 064
     Dates: start: 20110202, end: 20110301
  17. SPECIAFOLDINE [Concomitant]
     Active Substance: FOLIC ACID
     Dosage: 5 MG, QD
     Route: 064
     Dates: start: 20110526, end: 20110802
  18. DEPAKINE CHRONO [Suspect]
     Active Substance: VALPROATE SODIUM
     Indication: PRODUCT USED FOR UNKNOWN INDICATION
     Dosage: UNK
     Route: 064
     Dates: start: 201012, end: 20110802
  19. DEPAKINE CHRONO [Suspect]
     Active Substance: VALPROATE SODIUM
     Dosage: 1 IN THE EVENING, ONCE DAILY (QD)
     Route: 064
     Dates: start: 20110301, end: 20110526
  20. URBANYL [Suspect]
     Active Substance: CLOBAZAM
     Dosage: 1 IN THE MORNING AND ? IN THE EVENING
     Route: 064
     Dates: start: 20110526, end: 20110802
  21. ADALATE [Concomitant]
     Active Substance: NIFEDIPINE
     Indication: PRODUCT USED FOR UNKNOWN INDICATION

REACTIONS (49)
  - Tracheitis [Unknown]
  - Nasopharyngitis [Unknown]
  - Congenital infection [Unknown]
  - Aggression [Unknown]
  - Presyncope [Unknown]
  - Frustration tolerance decreased [Unknown]
  - Disturbance in attention [Unknown]
  - Laryngitis [Unknown]
  - Neonatal respiratory distress syndrome [Unknown]
  - Periorbital oedema [Unknown]
  - Nervousness [Unknown]
  - Syncope [Unknown]
  - Dysgraphia [Unknown]
  - Motor dysfunction [Unknown]
  - Dysmorphism [Unknown]
  - Cognitive disorder [Unknown]
  - Joint laxity [Unknown]
  - Dyslexia [Unknown]
  - Bronchiolitis [Unknown]
  - Arthropathy [Unknown]
  - Learning disorder [Unknown]
  - Regurgitation [Unknown]
  - Hand-eye coordination impaired [Unknown]
  - Dyspraxia [Unknown]
  - Irritability [Unknown]
  - Language disorder [Unknown]
  - Ear malformation [Unknown]
  - Vomiting [Unknown]
  - Autism spectrum disorder [Unknown]
  - Clonus [Unknown]
  - Congenital hand malformation [Unknown]
  - Psychomotor hyperactivity [Unknown]
  - Malaise [Unknown]
  - Attention deficit hyperactivity disorder [Unknown]
  - Maternal exposure during pregnancy [Unknown]
  - Psychomotor retardation [Unknown]
  - Impulsive behaviour [Unknown]
  - Foetal anticonvulsant syndrome [Unknown]
  - Head injury [Unknown]
  - Cardiac murmur functional [Unknown]
  - Anger [Unknown]
  - Behaviour disorder [Unknown]
  - Bronchitis [Unknown]
  - Fall [Unknown]
  - Epilepsy [Unknown]
  - Phobia [Unknown]
  - Intellectual disability [Unknown]
  - Oppositional defiant disorder [Unknown]
  - Abnormal behaviour [Unknown]

NARRATIVE: CASE EVENT DATE: 20110802
